FAERS Safety Report 25358978 (Version 1)
Quarter: 2025Q2

REPORT INFORMATION
  Report Type: Spontaneous
  Country: US (occurrence: US)
  Receive Date: 20250526
  Receipt Date: 20250526
  Transmission Date: 20250717
  Serious: No
  Sender: APOTEX
  Company Number: US-APOTEX-2025AP006541

PATIENT
  Sex: Female

DRUGS (2)
  1. RISEDRONATE SODIUM [Suspect]
     Active Substance: RISEDRONATE SODIUM
     Indication: Autoimmune arthritis
     Dosage: 1 DOSAGE FORM, Q.WK.
     Route: 065
     Dates: start: 2024
  2. RISEDRONATE SODIUM [Suspect]
     Active Substance: RISEDRONATE SODIUM
     Dosage: 1 DOSAGE FORM, Q.WK.
     Route: 065
     Dates: start: 2025

REACTIONS (2)
  - Pain in jaw [Recovering/Resolving]
  - Toothache [Not Recovered/Not Resolved]

NARRATIVE: CASE EVENT DATE: 20250401
